FAERS Safety Report 8787922 (Version 3)
Quarter: 2014Q3

REPORT INFORMATION
  Report Type: Report from Study
  Country: US (occurrence: US)
  Receive Date: 20120914
  Receipt Date: 20140902
  Transmission Date: 20150326
  Serious: Yes (Death, Other)
  Sender: FDA-Public Use
  Company Number: US-ROCHE-1127964

PATIENT
  Age: 79 Year
  Sex: Female
  Weight: 71 kg

DRUGS (5)
  1. GEMZAR [Concomitant]
     Active Substance: GEMCITABINE HYDROCHLORIDE
  2. TAXOTERE [Concomitant]
     Active Substance: DOCETAXEL
  3. AVASTIN [Suspect]
     Active Substance: BEVACIZUMAB
     Indication: BREAST CANCER FEMALE
     Route: 042
     Dates: start: 20050517, end: 20050830
  4. AVASTIN [Suspect]
     Active Substance: BEVACIZUMAB
     Route: 042
  5. AVASTIN [Suspect]
     Active Substance: BEVACIZUMAB
     Indication: BREAST CANCER METASTATIC
     Route: 042
     Dates: start: 20060207, end: 20060523

REACTIONS (2)
  - Ascites [Unknown]
  - Death [Fatal]

NARRATIVE: CASE EVENT DATE: 200605
